FAERS Safety Report 20390043 (Version 1)
Quarter: 2022Q1

REPORT INFORMATION
  Report Type: Spontaneous
  Country: None (occurrence: US)
  Receive Date: 20220128
  Receipt Date: 20220128
  Transmission Date: 20220423
  Serious: No
  Sender: FDA-Public Use
  Company Number: US-SERB S.A.S.-2124385

PATIENT
  Age: 79 Year
  Sex: Female

DRUGS (14)
  1. CYANOKIT [Suspect]
     Active Substance: HYDROXOCOBALAMIN
     Indication: Vasoplegia syndrome
     Route: 042
     Dates: start: 20210414, end: 20210414
  2. NIMODIPINE [Concomitant]
     Active Substance: NIMODIPINE
     Route: 050
     Dates: start: 20210414, end: 20210414
  3. NICARDIPINE (NICARDIPINE) [Concomitant]
     Route: 041
     Dates: start: 20210414
  4. PROPOFOL [Concomitant]
     Active Substance: PROPOFOL
     Route: 065
     Dates: start: 20210414
  5. PHENYLEPHRINE [Concomitant]
     Active Substance: PHENYLEPHRINE HYDROCHLORIDE
     Route: 042
     Dates: start: 20210414, end: 20210414
  6. NOREPINEPHRINE [Concomitant]
     Active Substance: NOREPINEPHRINE
     Route: 041
     Dates: start: 20210414, end: 20210414
  7. VASOPRESSIN [Concomitant]
     Active Substance: VASOPRESSIN
     Route: 041
     Dates: start: 20210414, end: 20210414
  8. Crystalloid Fluid [Concomitant]
     Route: 040
     Dates: start: 20210414
  9. EPINEPHRINE [Concomitant]
     Active Substance: EPINEPHRINE
     Route: 041
     Dates: start: 20210414, end: 20210414
  10. UNSPECIFIED INGREDIENT [Concomitant]
     Active Substance: UNSPECIFIED INGREDIENT
     Route: 065
     Dates: start: 20210414
  11. UNSPECIFIED INGREDIENT [Concomitant]
     Active Substance: UNSPECIFIED INGREDIENT
     Route: 065
     Dates: start: 20210414
  12. CALCIUM CHLORIDE [Concomitant]
     Active Substance: CALCIUM CHLORIDE
     Route: 065
     Dates: start: 20210414, end: 20210414
  13. METHYLENE BLUE [Concomitant]
     Active Substance: METHYLENE BLUE
     Route: 042
     Dates: start: 20210414
  14. SODIUM CHLORIDE [Concomitant]
     Active Substance: SODIUM CHLORIDE
     Route: 040
     Dates: start: 20210414

REACTIONS (3)
  - Chromaturia [Recovered/Resolved]
  - Therapeutic product effective for unapproved indication [Recovered/Resolved]
  - Off label use [Recovered/Resolved]

NARRATIVE: CASE EVENT DATE: 20210414
